FAERS Safety Report 6068777-X (Version None)
Quarter: 2009Q1

REPORT INFORMATION
  Report Type: 
  Country: None (occurrence: None)
  Receive Date: 20090206
  Receipt Date: 20090122
  Transmission Date: 20090719
  Serious: Yes (Hospitalization, Other)
  Sender: FDA-Public Use
  Company Number: DE-GENENTECH-274877

PATIENT
  Sex: Male

DRUGS (2)
  1. BEVACIZUMAB [Suspect]
     Indication: COLORECTAL CANCER
     Dosage: 5 MG/KG, UNK
     Route: 042
     Dates: start: 20080303
  2. CHEMOTHERAPY NOS [Concomitant]
     Indication: COLORECTAL CANCER
     Dosage: UNK

REACTIONS (2)
  - MYOCARDIAL INFARCTION [None]
  - RENAL INFARCT [None]
